FAERS Safety Report 9823459 (Version 2)
Quarter: 2014Q1

REPORT INFORMATION
  Report Type: Spontaneous
  Country: US (occurrence: US)
  Receive Date: 20140116
  Receipt Date: 20140116
  Transmission Date: 20141002
  Serious: No
  Sender: FDA-Public Use
  Company Number: US-GILEAD-2011-0035262

PATIENT
  Age: 21 Year
  Sex: Male

DRUGS (3)
  1. LETAIRIS [Suspect]
     Indication: PULMONARY ARTERIAL HYPERTENSION
     Route: 048
     Dates: start: 20101115
  2. VENTAVIS [Concomitant]
     Dates: start: 20091209
  3. LASIX [Concomitant]
     Dates: start: 20100702

REACTIONS (1)
  - Irritability [Recovered/Resolved]
